FAERS Safety Report 6247110-4 (Version None)
Quarter: 2009Q2

REPORT INFORMATION
  Report Type: 
  Country: None (occurrence: None)
  Receive Date: 20090626
  Receipt Date: 20090615
  Transmission Date: 20091009
  Serious: Yes (Other)
  Sender: FDA-Public Use
  Company Number: PHEH2009US06279

PATIENT
  Age: 59 Year
  Sex: Male
  Weight: 77.324 kg

DRUGS (2)
  1. EXJADE [Suspect]
     Indication: HEREDITARY HAEMOCHROMATOSIS
     Dosage: 500 MG, QD
     Route: 048
     Dates: start: 20081001, end: 20090601
  2. LOVENOX [Concomitant]

REACTIONS (4)
  - ANAEMIA [None]
  - BLEEDING TIME PROLONGED [None]
  - HAEMORRHAGE [None]
  - SURGERY [None]
